FAERS Safety Report 24205827 (Version 6)
Quarter: 2024Q4

REPORT INFORMATION
  Report Type: Spontaneous
  Country: HU (occurrence: HU)
  Receive Date: 20240813
  Receipt Date: 20241014
  Transmission Date: 20250115
  Serious: Yes (Life-Threatening, Hospitalization, Other)
  Sender: MYLAN
  Company Number: HU-TEVA-VS-3222819

PATIENT
  Age: 78 Year
  Sex: Male

DRUGS (1)
  1. METFORMIN [Suspect]
     Active Substance: METFORMIN HYDROCHLORIDE
     Indication: Type 2 diabetes mellitus
     Dosage: 850 MILLIGRAM, BID (2 TIMES 850 MGS)
     Route: 048

REACTIONS (18)
  - Glomerular filtration rate decreased [Recovering/Resolving]
  - Lactic acidosis [Recovered/Resolved]
  - Hyperkalaemia [Recovering/Resolving]
  - Renal cyst [Unknown]
  - Azotaemia [Recovering/Resolving]
  - Renal failure [Unknown]
  - Hypovolaemia [Unknown]
  - Anaemia [Recovering/Resolving]
  - Thrombocytopenia [Recovered/Resolved]
  - Urinary tract infection bacterial [Recovered/Resolved]
  - Diarrhoea [Unknown]
  - Liver function test increased [Recovered/Resolved]
  - Urinary tract infection [Recovered/Resolved]
  - Haematuria [Recovered/Resolved]
  - Blood urine present [Recovered/Resolved]
  - Obstructive airways disorder [Recovered/Resolved]
  - Blood lactate dehydrogenase increased [Unknown]
  - Contraindicated product administered [Unknown]
